FAERS Safety Report 13732573 (Version 1)
Quarter: 2017Q3

REPORT INFORMATION
  Report Type: Spontaneous
  Country: US (occurrence: US)
  Receive Date: 20170707
  Receipt Date: 20170707
  Transmission Date: 20171127
  Serious: Yes (Other)
  Sender: FDA-Public Use
  Company Number: US-SA-2017SA114875

PATIENT
  Age: 31 Year
  Sex: Male

DRUGS (2)
  1. TRIAMCINOLONE ACETONIDE. [Suspect]
     Active Substance: TRIAMCINOLONE ACETONIDE
     Indication: ASTHMA EXERCISE INDUCED
     Dosage: DOSE ONE TO TWO PUFFS A DAY. FORM AEROSOL INHALER (METERED DOSE INHALER)
     Route: 055
  2. ALBUTEROL. [Suspect]
     Active Substance: ALBUTEROL
     Indication: ASTHMA EXERCISE INDUCED
     Dosage: DOSE ONE TO TWO PUFFS A DAY. FORM AEROSOL INHALER (METERED DOSE INHALER)
     Route: 055

REACTIONS (5)
  - Retinal detachment [Recovered/Resolved]
  - Visual acuity reduced [Recovering/Resolving]
  - Hypertension [Unknown]
  - Subretinal fluid [Recovered/Resolved]
  - Vision blurred [Recovering/Resolving]

NARRATIVE: CASE EVENT DATE: 199303
